FAERS Safety Report 7752335-2 (Version None)
Quarter: 2011Q3

REPORT INFORMATION
  Report Type: 
  Country: None (occurrence: None)
  Receive Date: 20110915
  Receipt Date: 20110902
  Transmission Date: 20111222
  Serious: No
  Sender: FDA-Public Use
  Company Number: CA-ELI_LILLY_AND_COMPANY-CA201109000632

PATIENT
  Sex: Female

DRUGS (11)
  1. BENZTROPINE MESYLATE [Concomitant]
  2. ZYPREXA [Suspect]
     Dosage: 12.5 MG, QD
  3. ZYPREXA [Suspect]
     Indication: SCHIZOAFFECTIVE DISORDER
     Dosage: 15 MG, QD
  4. ZYPREXA [Suspect]
     Dosage: 5 MG, QD
  5. ZYPREXA [Suspect]
     Dosage: 7.5 MG, QD
  6. CLOZAPINE [Concomitant]
  7. ZYPREXA [Suspect]
     Dosage: 2.5 MG, QD
  8. VALPROATE SODIUM [Concomitant]
  9. ZYPREXA [Suspect]
     Dosage: 10 MG, QD
  10. FLUPHENAZINE [Concomitant]
  11. ZYPREXA ZYDIS [Suspect]
     Indication: SCHIZOAFFECTIVE DISORDER
     Dosage: 10 MG, QD

REACTIONS (7)
  - HAEMATOCRIT INCREASED [None]
  - RED BLOOD CELL COUNT INCREASED [None]
  - BLOOD CHOLESTEROL INCREASED [None]
  - DIABETES MELLITUS [None]
  - HYPERGLYCAEMIA [None]
  - HAEMOGLOBIN INCREASED [None]
  - BLOOD TRIGLYCERIDES INCREASED [None]
